FAERS Safety Report 5340777-4 (Version None)
Quarter: 2007Q2

REPORT INFORMATION
  Report Type: 
  Country: None (occurrence: None)
  Receive Date: 20070405
  Receipt Date: 20070108
  Transmission Date: 20071010
  Serious: No
  Sender: FDA-Public Use
  Company Number: US200701001269

PATIENT
  Age: 36 Year
  Sex: Female

DRUGS (4)
  1. CYMBALTA [Suspect]
     Indication: DEPRESSION
     Dosage: 30 MG DAILY (1/D)
     Dates: start: 20061201
  2. PROZAC [Suspect]
     Indication: DEPRESSION
     Dates: start: 19800101
  3. STRATTERA [Suspect]
  4. LUVOX (FLUCOXAMINE MALEATE) [Concomitant]

REACTIONS (5)
  - DIARRHOEA [None]
  - EATING DISORDER SYMPTOM [None]
  - INFLUENZA LIKE ILLNESS [None]
  - PSYCHOMOTOR HYPERACTIVITY [None]
  - ROAD TRAFFIC ACCIDENT [None]
